FAERS Safety Report 18292392 (Version 8)
Quarter: 2020Q4

REPORT INFORMATION
  Report Type: Spontaneous
  Country: CA (occurrence: CA)
  Receive Date: 20200922
  Receipt Date: 20201230
  Transmission Date: 20210113
  Serious: Yes (Other)
  Sender: FDA-Public Use
  Company Number: CA-CELLTRION INC.-2020CA028080

PATIENT

DRUGS (7)
  1. INFLECTRA [Suspect]
     Active Substance: INFLIXIMAB-DYYB
     Indication: COLITIS ULCERATIVE
     Dosage: 10 MG/KG, AT 0, 1 AND 3 WEEKS, THEN EVERY 8 WEEKS
     Route: 042
     Dates: start: 20200911
  2. PREDNISONE. [Concomitant]
     Active Substance: PREDNISONE
     Dosage: 20 MG, 1X/DAY ON DECREASING DOSES
     Route: 048
  3. INFLECTRA [Suspect]
     Active Substance: INFLIXIMAB-DYYB
     Dosage: 10 MG/KG, AT 0, 1 AND 3 WEEKS, THEN EVERY 8 WEEKS
     Route: 042
     Dates: start: 20200930
  4. INFLECTRA [Suspect]
     Active Substance: INFLIXIMAB-DYYB
     Dosage: 10 MG/KG, AT 0, 1 AND 3 WEEKS, THEN EVERY 8 WEEKS
     Route: 042
     Dates: start: 20201125
  5. VENOFER [Concomitant]
     Active Substance: IRON SUCROSE
     Indication: ANAEMIA
     Dosage: UNK (IRON INFUSIONS)
     Route: 042
  6. SOLU-MEDROL [Concomitant]
     Active Substance: METHYLPREDNISOLONE SODIUM SUCCINATE
     Dosage: UNK
     Route: 065
  7. INFLECTRA [Suspect]
     Active Substance: INFLIXIMAB-DYYB
     Dosage: 10 MG/KG, AT 0, 1 AND 3 WEEKS, THEN EVERY 8 WEEKS
     Route: 042
     Dates: start: 20200916

REACTIONS (9)
  - Off label use [Unknown]
  - Anaemia [Unknown]
  - Weight increased [Unknown]
  - Colitis ulcerative [Not Recovered/Not Resolved]
  - Drug level below therapeutic [Unknown]
  - Acne [Unknown]
  - Erythema [Unknown]
  - Hypoalbuminaemia [Unknown]
  - Product use issue [Unknown]

NARRATIVE: CASE EVENT DATE: 202009
